FAERS Safety Report 26114825 (Version 2)
Quarter: 2025Q4

REPORT INFORMATION
  Report Type: Report from Study
  Country: GB (occurrence: GB)
  Receive Date: 20251203
  Receipt Date: 20251216
  Transmission Date: 20260118
  Serious: Yes (Hospitalization)
  Sender: ALEXION PHARMACEUTICALS
  Company Number: GB-AstraZeneca-CH-00995698A

PATIENT
  Age: 40 Year
  Sex: Female

DRUGS (1)
  1. SOLIRIS [Suspect]
     Active Substance: ECULIZUMAB
     Indication: Paroxysmal nocturnal haemoglobinuria
     Dosage: 900 MILLIGRAM, TWICE WEEKLY

REACTIONS (5)
  - Caesarean section [Unknown]
  - Fatigue [Not Recovered/Not Resolved]
  - Exposure during pregnancy [Recovered/Resolved]
  - Post procedural haematoma [Not Recovered/Not Resolved]
  - Abdominal discomfort [Recovered/Resolved]
